FAERS Safety Report 8006241-9 (Version None)
Quarter: 2011Q4

REPORT INFORMATION
  Report Type: 
  Country: None (occurrence: None)
  Receive Date: 20111226
  Receipt Date: 20111212
  Transmission Date: 20120403
  Serious: Yes (Hospitalization, Other)
  Sender: FDA-Public Use
  Company Number: US-ELI_LILLY_AND_COMPANY-US201109001357

PATIENT
  Sex: Female

DRUGS (6)
  1. LIBRIUM [Concomitant]
  2. PROTONIX [Concomitant]
  3. VITAMIN D [Concomitant]
  4. FORTEO [Suspect]
     Indication: OSTEOPOROSIS
     Dosage: 20 UG, UNK
  5. BETAPACE [Concomitant]
     Indication: CARDIAC DISORDER
     Dosage: 40 MG, QD
  6. ASPIRIN [Concomitant]

REACTIONS (5)
  - ARRHYTHMIA [None]
  - ANXIETY [None]
  - OSTEOPOROSIS [None]
  - ASTHENIA [None]
  - BACK PAIN [None]
